FAERS Safety Report 10055980 (Version 5)
Quarter: 2015Q2

REPORT INFORMATION
  Report Type: Spontaneous
  Country: US (occurrence: US)
  Receive Date: 20140403
  Receipt Date: 20150520
  Transmission Date: 20150821
  Serious: Yes (Hospitalization)
  Sender: FDA-Public Use
  Company Number: US-PFIZER INC-2014089677

PATIENT
  Age: 58 Year
  Sex: Male

DRUGS (22)
  1. ATORVASTATIN CALCIUM. [Concomitant]
     Active Substance: ATORVASTATIN CALCIUM
     Dosage: 80 MG, DAILY
     Route: 048
     Dates: start: 2011
  2. METFORMIN [Concomitant]
     Active Substance: METFORMIN HYDROCHLORIDE
     Dosage: 850 MG, 3X/DAY (3 TIMES EVERY DAY WITH MORNING AND EVENING MEALS)
     Route: 048
     Dates: start: 2007
  3. DOCQLACE [Concomitant]
     Active Substance: DOCUSATE SODIUM
     Dosage: 100 MG, 2X/DAY (TAKE 1 CAPSULE BY ORAL ROUTE 2 TIMES EVERY DAY PRN)
     Route: 048
     Dates: start: 2008
  4. ASPIRIN. [Concomitant]
     Active Substance: ASPIRIN
     Dosage: 81 MG, DAILY
     Route: 048
     Dates: start: 2014
  5. GLIMEPIRIDE. [Concomitant]
     Active Substance: GLIMEPIRIDE
     Dosage: 1 MG, DAILY
     Route: 048
     Dates: start: 2010
  6. LIDODERM [Concomitant]
     Active Substance: LIDOCAINE
     Dosage: 700 MG, 1X/DAY (APPLY 1 PATCH BY TRANSDERMAL ROUTE EVERY DAY (MAY WEAR UP TO 12HOURS)
     Route: 062
  7. COLACE [Concomitant]
     Active Substance: DOCUSATE SODIUM
     Dosage: 100 MG, 2X/DAY(EVERYDAY AT BEDTIME AS NEEDED)
     Route: 048
     Dates: start: 2010
  8. PENTOXIFYLLINE. [Concomitant]
     Active Substance: PENTOXIFYLLINE
     Dosage: 400 MG, 3X/DAY
     Route: 048
     Dates: start: 2007
  9. LIDODERM [Concomitant]
     Active Substance: LIDOCAINE
     Dosage: 700 MG, 2X/DAY(APPLY 2 PATCHES DAILY)
     Route: 062
     Dates: start: 2010
  10. PENTOXIFYLLINE. [Concomitant]
     Active Substance: PENTOXIFYLLINE
     Dosage: 400 MG, 2X/DAY (TAKE 1 TABLET BY ORAL ROUTE 2 TIMES EVERY DAY WITH MEALS)
     Route: 048
  11. CAPSAICIN. [Concomitant]
     Active Substance: CAPSAICIN
     Dosage: UNK(3 TIMES EVERY DAY TO THE AFFECTED AREA)
     Route: 061
     Dates: start: 2014
  12. SOMA [Concomitant]
     Active Substance: CARISOPRODOL
     Dosage: 350 MG, 4X/DAY
     Route: 048
     Dates: start: 2005
  13. OXYCODONE [Concomitant]
     Active Substance: OXYCODONE
     Dosage: 30 MG, 7 TIMES PER DAY
     Route: 048
     Dates: start: 2007
  14. OXYCODONE [Concomitant]
     Active Substance: OXYCODONE
     Dosage: 30 MG, 4X/DAY
     Route: 048
  15. LYRICA [Suspect]
     Active Substance: PREGABALIN
     Indication: DIABETIC NEUROPATHY
     Dosage: 200 MG, 2X/DAY
     Route: 048
     Dates: start: 2003
  16. FLURAZEPAM [Concomitant]
     Active Substance: FLURAZEPAM\FLURAZEPAM HYDROCHLORIDE
     Dosage: TAKE 1 CAPSULE 30 MG EVERY DAY AT BEDTIME AS NEEDED
     Route: 048
     Dates: start: 2008
  17. PRILOSEC [Concomitant]
     Active Substance: OMEPRAZOLE MAGNESIUM
     Dosage: 20 MG, 1X/DAY
     Route: 048
     Dates: start: 2014
  18. TEMAZEPAM. [Concomitant]
     Active Substance: TEMAZEPAM
     Dosage: 30 MG, AS NEEDED (TAKE 1 CAPSULE BY ORAL ROUTE EVERY DAY AT BEDTIME AS NEEDED)
     Route: 048
     Dates: start: 2009
  19. HYDROCORTISONE ACETATE. [Concomitant]
     Active Substance: HYDROCORTISONE ACETATE
     Dosage: UNK
     Route: 061
     Dates: start: 2014
  20. ALPHA LIPOIC ACID [Concomitant]
     Active Substance: .ALPHA.-LIPOIC ACID
     Dosage: 600 MG, UNK
     Dates: start: 2014
  21. DOXAZOSIN [Concomitant]
     Active Substance: DOXAZOSIN\DOXAZOSIN MESYLATE
     Dosage: 1 MG, 1X/DAY
     Route: 048
     Dates: start: 2011
  22. CLOTRIMAZOL 1% [Concomitant]
     Dosage: UNK(2 TIMES EVERY DAY TO AFFECTED AREA)
     Route: 061
     Dates: start: 2014

REACTIONS (6)
  - Impaired healing [Recovered/Resolved]
  - Peroneal nerve palsy [Not Recovered/Not Resolved]
  - Skin lesion [Recovered/Resolved]
  - Neuropathy peripheral [Not Recovered/Not Resolved]
  - Hypoaesthesia [Not Recovered/Not Resolved]
  - Memory impairment [Recovered/Resolved]

NARRATIVE: CASE EVENT DATE: 2004
